FAERS Safety Report 6151285-5 (Version None)
Quarter: 2009Q2

REPORT INFORMATION
  Report Type: 
  Country: None (occurrence: None)
  Receive Date: 20090410
  Receipt Date: 20090402
  Transmission Date: 20091009
  Serious: Yes (Disabling)
  Sender: FDA-Public Use
  Company Number: JP-ASTRAZENECA-2009AP01356

PATIENT
  Age: 61 Year
  Sex: Female

DRUGS (2)
  1. NOLVADEX [Suspect]
     Indication: BREAST CANCER
     Route: 048
     Dates: start: 20081015, end: 20090105
  2. LEUPLIN [Concomitant]
     Indication: BREAST CANCER
     Dosage: FOUR TIMES A WEEK
     Route: 058
     Dates: start: 20081015

REACTIONS (1)
  - OPTIC NEURITIS [None]
